FAERS Safety Report 14405631 (Version 1)
Quarter: 2018Q1

REPORT INFORMATION
  Report Type: Spontaneous
  Country: US (occurrence: US)
  Receive Date: 20180118
  Receipt Date: 20180118
  Transmission Date: 20180509
  Serious: Yes (Hospitalization, Other)
  Sender: FDA-Public Use
  Company Number: US-ROCHE-2020987

PATIENT
  Age: 16 Year
  Sex: Female

DRUGS (29)
  1. DEXMEDETOMIDINE HYDROCHLORIDE. [Concomitant]
     Active Substance: DEXMEDETOMIDINE HYDROCHLORIDE
  2. GUAIFENESIN. [Concomitant]
     Active Substance: GUAIFENESIN
  3. LORAZEPAM. [Concomitant]
     Active Substance: LORAZEPAM
     Route: 065
     Dates: start: 20151022
  4. TISAGENLECLEUCEL. [Suspect]
     Active Substance: TISAGENLECLEUCEL
     Indication: DIFFUSE LARGE B-CELL LYMPHOMA
     Dosage: DOSAGE IS UNCERTAIN.
     Route: 041
     Dates: start: 20151016
  5. CYCLOPHOSPHAMIDE. [Suspect]
     Active Substance: CYCLOPHOSPHAMIDE
     Indication: PRODUCT USED FOR UNKNOWN INDICATION
     Route: 065
     Dates: start: 20151010, end: 20151011
  6. FLUDARABINE [Suspect]
     Active Substance: FLUDARABINE PHOSPHATE
     Indication: PRODUCT USED FOR UNKNOWN INDICATION
     Route: 065
     Dates: start: 20151010, end: 20151013
  7. NYSTATIN. [Concomitant]
     Active Substance: NYSTATIN
  8. CHLORHEXIDINE GLUCONATE. [Concomitant]
     Active Substance: CHLORHEXIDINE GLUCONATE
  9. CEFEPIME [Concomitant]
     Active Substance: CEFEPIME HYDROCHLORIDE
  10. TRAZODONE [Concomitant]
     Active Substance: TRAZODONE HYDROCHLORIDE
  11. NOREPINEPHRINE. [Concomitant]
     Active Substance: NOREPINEPHRINE
  12. HYDROCHLOROTHIAZIDE. [Concomitant]
     Active Substance: HYDROCHLOROTHIAZIDE
  13. OLANZAPINE. [Concomitant]
     Active Substance: OLANZAPINE
  14. FLUCONAZOLE. [Concomitant]
     Active Substance: FLUCONAZOLE
  15. LEVOGLUTAMIDE [Concomitant]
     Active Substance: GLUTAMINE
  16. FUROSEMIDE. [Concomitant]
     Active Substance: FUROSEMIDE
  17. LABETALOL [Concomitant]
     Active Substance: LABETALOL\LABETALOL HYDROCHLORIDE
  18. NIFEDIPINE. [Concomitant]
     Active Substance: NIFEDIPINE
  19. PARACETAMOL [Concomitant]
     Active Substance: ACETAMINOPHEN
  20. VANCOMYCIN [Concomitant]
     Active Substance: VANCOMYCIN
  21. ALLOPURINOL. [Concomitant]
     Active Substance: ALLOPURINOL
     Route: 065
  22. BUMETANIDE. [Concomitant]
     Active Substance: BUMETANIDE
  23. METOLAZONE. [Concomitant]
     Active Substance: METOLAZONE
  24. CLONIDINE. [Concomitant]
     Active Substance: CLONIDINE
  25. RASBURICASE [Concomitant]
     Active Substance: RASBURICASE
  26. ACTEMRA [Suspect]
     Active Substance: TOCILIZUMAB
     Indication: CYTOKINE RELEASE SYNDROME
     Dosage: DOSAGE IS UNCERTAIN.
     Route: 042
     Dates: start: 20151022
  27. GENTAMICIN. [Concomitant]
     Active Substance: GENTAMICIN
  28. SODIUM CHLORIDE. [Concomitant]
     Active Substance: SODIUM CHLORIDE
  29. CEFDINIR. [Concomitant]
     Active Substance: CEFDINIR

REACTIONS (4)
  - Encephalopathy [Recovered/Resolved]
  - Pneumonia respiratory syncytial viral [Not Recovered/Not Resolved]
  - Dysphagia [Recovered/Resolved]
  - Somnolence [Recovered/Resolved]

NARRATIVE: CASE EVENT DATE: 20151023
